FAERS Safety Report 16183842 (Version 1)
Quarter: 2019Q2

REPORT INFORMATION
  Report Type: Spontaneous
  Country: GB (occurrence: GB)
  Receive Date: 20190411
  Receipt Date: 20190411
  Transmission Date: 20190711
  Serious: Yes (Hospitalization, Other)
  Sender: FDA-Public Use
  Company Number: GB-APOTEX-2019AP011556

PATIENT
  Age: 35 Year
  Sex: Female

DRUGS (2)
  1. PARACETAMOL [Suspect]
     Active Substance: ACETAMINOPHEN
     Indication: BACK PAIN
     Dosage: 7.5 G,1.9 TIMES THE MAXIMUM RECOMMENDED DAILY DOSES
     Route: 065
  2. IBUPROFEN. [Suspect]
     Active Substance: IBUPROFEN
     Indication: BACK PAIN
     Dosage: 6 G, 2.5 TIMES THE MAXIMUM RECOMMENDED DAILY DOSES
     Route: 065

REACTIONS (3)
  - Drug abuse [Unknown]
  - Accidental overdose [Unknown]
  - Gastric ulcer [Unknown]
